FAERS Safety Report 8868684 (Version 1)
Quarter: 2012Q4

REPORT INFORMATION
  Report Type: 
  Country: US (occurrence: US)
  Receive Date: 20121026
  Receipt Date: 20121026
  Transmission Date: 20130627
  Serious: No
  Sender: FDA-Public Use
  Company Number: US-AMGEN-USASP2012047308

PATIENT
  Age: 64 Year
  Sex: Female

DRUGS (8)
  1. ENBREL [Suspect]
     Indication: PRODUCT USED FOR UNKNOWN INDICATION
     Dosage: 50 mg, qwk
     Route: 058
  2. PAXIL [Concomitant]
     Dosage: 10 mg, UNK
  3. TOPAMAX [Concomitant]
     Dosage: 25 mg, UNK
  4. METHOTREXATE [Concomitant]
     Dosage: 2.5 mg, UNK
  5. SIMVASTATIN [Concomitant]
     Dosage: 10 mg, UNK
  6. FOLIC ACID [Concomitant]
     Dosage: 1 mg, UNK
  7. VITAMIN E                          /00110501/ [Concomitant]
     Dosage: Vitamin E 1000 unit
  8. HYDROCHLOROTHIAZIDE [Concomitant]
     Dosage: HCTZ/TRIAMT TAB 25-37.5

REACTIONS (1)
  - Staphylococcal infection [Unknown]
